FAERS Safety Report 7853695-4 (Version None)
Quarter: 2011Q4

REPORT INFORMATION
  Report Type: 
  Country: None (occurrence: None)
  Receive Date: 20111026
  Receipt Date: 20111013
  Transmission Date: 20120403
  Serious: Yes (Hospitalization)
  Sender: FDA-Public Use
  Company Number: US-BAYER-201012030NA

PATIENT
  Age: 17 Year
  Sex: Female
  Weight: 91 kg

DRUGS (12)
  1. NASONEX [Concomitant]
  2. YAZ [Suspect]
     Route: 048
     Dates: start: 20060101, end: 20070101
  3. ASMANEX TWISTHALER [Concomitant]
  4. MOTRIN [Concomitant]
     Indication: PAIN
     Dosage: 400 - 600MG EVERY 6 HOURS AS NEEDED
     Dates: start: 20070203
  5. SINGULAIR [Concomitant]
  6. DROSPIRENONE AND ETHINYL ESTRADIOL [Suspect]
     Dosage: UNK
     Route: 048
     Dates: start: 20080101, end: 20100101
  7. CLARITIN [Concomitant]
  8. GYLOLAX [Concomitant]
  9. ZOFRAN [Concomitant]
     Indication: PRODUCT USED FOR UNKNOWN INDICATION
     Dosage: 8 MG (DAILY DOSE), QD,
     Dates: start: 20070903, end: 20070905
  10. YASMIN [Suspect]
     Dosage: 1 DF (DAILY DOSE), , ORAL
     Route: 048
  11. METFORMIN HCL [Concomitant]
     Dosage: 500 MG (DAILY DOSE), ,
  12. GLUCOPHAGE [Concomitant]
     Indication: PRODUCT USED FOR UNKNOWN INDICATION

REACTIONS (7)
  - CHOLELITHIASIS [None]
  - BILIARY DYSKINESIA [None]
  - HEADACHE [None]
  - CHOLECYSTITIS CHRONIC [None]
  - ABDOMINAL PAIN UPPER [None]
  - VOMITING [None]
  - BACK PAIN [None]
